FAERS Safety Report 6578554-9 (Version None)
Quarter: 2010Q1

REPORT INFORMATION
  Report Type: 
  Country: None (occurrence: None)
  Receive Date: 20100211
  Receipt Date: 20100203
  Transmission Date: 20100710
  Serious: Yes (Hospitalization, Other)
  Sender: FDA-Public Use
  Company Number: JP-PFIZER INC-2010014235

PATIENT
  Age: 57 Year
  Sex: Female

DRUGS (4)
  1. SERTRALINE HCL [Suspect]
     Dosage: UNK
     Route: 048
     Dates: start: 20090608
  2. LEVODOPA [Suspect]
     Indication: PARKINSON'S DISEASE
     Dosage: UNK
  3. BENSERAZIDE HYDROCHLORIDE [Suspect]
     Indication: PARKINSON'S DISEASE
     Dosage: UNK
  4. CARBIDOPA [Suspect]
     Dosage: UNK

REACTIONS (10)
  - ANXIETY [None]
  - CONSTIPATION [None]
  - DEPRESSED MOOD [None]
  - GAIT DISTURBANCE [None]
  - HALLUCINATION, VISUAL [None]
  - INSOMNIA [None]
  - OVERDOSE [None]
  - SUICIDAL IDEATION [None]
  - TREMOR [None]
  - URINARY RETENTION [None]
